FAERS Safety Report 6305634-5 (Version None)
Quarter: 2009Q3

REPORT INFORMATION
  Report Type: 
  Country: None (occurrence: None)
  Receive Date: 20090806
  Receipt Date: 20090714
  Transmission Date: 20100115
  Serious: Yes (Hospitalization)
  Sender: FDA-Public Use
  Company Number: 002307

PATIENT
  Age: 84 Year
  Sex: Female

DRUGS (1)
  1. PEGAPTAINIB SODIUM (PEGAPTAINIB SODIUM) UNKNOWN [Suspect]
     Dosage: 1 EVERY 6WKS; INTRAOCULR
     Dates: start: 20061213

REACTIONS (1)
  - UVEITIS [None]
